FAERS Safety Report 5541590-5 (Version None)
Quarter: 2007Q4

REPORT INFORMATION
  Report Type: 
  Country: None (occurrence: None)
  Receive Date: 20071210
  Receipt Date: 20071204
  Transmission Date: 20080405
  Serious: Yes (Other)
  Sender: FDA-Public Use
  Company Number: EG-AVENTIS-200721037GDDC

PATIENT
  Age: 63 Year
  Sex: Female

DRUGS (3)
  1. ARAVA [Suspect]
     Indication: RHEUMATOID ARTHRITIS
     Route: 048
     Dates: end: 20071201
  2. ACTONEL [Concomitant]
     Indication: OSTEOPOROSIS
     Dosage: DOSE: UNK
     Route: 048
  3. LACTOCAL [Concomitant]
     Indication: OSTEOPOROSIS
     Dosage: DOSE: UNK

REACTIONS (7)
  - ABDOMINAL DISTENSION [None]
  - ANOREXIA [None]
  - CONSTIPATION [None]
  - DYSGEUSIA [None]
  - FLATULENCE [None]
  - HEPATIC ENZYME INCREASED [None]
  - WEIGHT DECREASED [None]
